FAERS Safety Report 25587693 (Version 5)
Quarter: 2025Q4

REPORT INFORMATION
  Report Type: Spontaneous
  Country: EU (occurrence: EU)
  Receive Date: 20250721
  Receipt Date: 20251219
  Transmission Date: 20260118
  Serious: Yes (Hospitalization)
  Sender: NOVARTIS
  Company Number: EU-002147023-NVSC2025IE114879

PATIENT
  Sex: Female

DRUGS (2)
  1. XOLAIR [Suspect]
     Active Substance: OMALIZUMAB
     Indication: Chronic spontaneous urticaria
     Dosage: 600 MG (EVERY 4 WEEKS)
     Route: 065
     Dates: end: 20250426
  2. NEORAL [Suspect]
     Active Substance: CYCLOSPORINE
     Indication: Chronic spontaneous urticaria
     Dosage: UNK
     Route: 065

REACTIONS (5)
  - Angioedema [Unknown]
  - Swollen tongue [Unknown]
  - Pharyngeal swelling [Unknown]
  - Drug ineffective [Unknown]
  - Off label use [Unknown]
